FAERS Safety Report 17207544 (Version 1)
Quarter: 2019Q4

REPORT INFORMATION
  Report Type: Spontaneous
  Country: HN (occurrence: HN)
  Receive Date: 20191227
  Receipt Date: 20191227
  Transmission Date: 20200122
  Serious: Yes (Death)
  Sender: FDA-Public Use
  Company Number: HN-ALLERGAN-1952696US

PATIENT
  Sex: Female

DRUGS (7)
  1. MEROPENEM. [Suspect]
     Active Substance: MEROPENEM
     Indication: PNEUMONIA
     Dosage: UNK
     Route: 065
     Dates: start: 20191210
  2. INSULIN [Concomitant]
     Active Substance: INSULIN NOS
  3. ECALTA [Suspect]
     Active Substance: ANIDULAFUNGIN
     Indication: PNEUMONIA
     Dosage: UNK
     Route: 065
     Dates: start: 20191213
  4. DIGOXIN. [Concomitant]
     Active Substance: DIGOXIN
  5. CEFTAZIDIME;AVIBACTAM - BP [Suspect]
     Active Substance: AVIBACTAM SODIUM\CEFTAZIDIME
     Indication: PNEUMONIA
     Dosage: 2.5 G, Q8HR
     Route: 065
     Dates: start: 20191215
  6. LINEZOLID. [Suspect]
     Active Substance: LINEZOLID
     Indication: PNEUMONIA
     Dosage: UNK
     Route: 065
     Dates: start: 20191210
  7. NOREPINEPHRINE. [Concomitant]
     Active Substance: NOREPINEPHRINE

REACTIONS (1)
  - Death [Fatal]
